FAERS Safety Report 18208114 (Version 3)
Quarter: 2020Q4

REPORT INFORMATION
  Report Type: Spontaneous
  Country: JP (occurrence: JP)
  Receive Date: 20200828
  Receipt Date: 20201022
  Transmission Date: 20210113
  Serious: Yes (Hospitalization)
  Sender: FDA-Public Use
  Company Number: JP-ASTRAZENECA-2020SF07289

PATIENT
  Age: 30105 Day
  Sex: Male
  Weight: 73 kg

DRUGS (10)
  1. GLACTIV [Suspect]
     Active Substance: SITAGLIPTIN
     Indication: TYPE 2 DIABETES MELLITUS
     Route: 048
     Dates: end: 20200607
  2. SILODOSIN OD [Concomitant]
     Route: 048
     Dates: end: 20200607
  3. WARFARIN [Concomitant]
     Active Substance: WARFARIN
     Route: 048
     Dates: end: 20200605
  4. FORXIGA [Suspect]
     Active Substance: DAPAGLIFLOZIN
     Indication: TYPE 2 DIABETES MELLITUS
     Route: 048
     Dates: start: 20200528, end: 20200604
  5. PITAVASTATIN CA [Suspect]
     Active Substance: PITAVASTATIN CALCIUM
     Route: 048
     Dates: end: 20200607
  6. LASIX [Concomitant]
     Active Substance: FUROSEMIDE
     Indication: CARDIAC FAILURE CHRONIC
     Route: 042
     Dates: start: 20200518, end: 20200604
  7. BISOPROLOL FUMARATE. [Concomitant]
     Active Substance: BISOPROLOL FUMARATE
     Route: 048
  8. TORASEMIDE OD [Suspect]
     Active Substance: TORSEMIDE
     Route: 048
     Dates: end: 20200607
  9. SOLDACTONE [Concomitant]
     Active Substance: CANRENOATE POTASSIUM
     Indication: CARDIAC FAILURE CHRONIC
     Route: 042
     Dates: start: 20200520, end: 20200604
  10. FERROUS CITRATE NA [Concomitant]
     Active Substance: SODIUM FERROUS CITRATE
     Indication: CARDIAC FAILURE CHRONIC
     Route: 048
     Dates: end: 20200607

REACTIONS (1)
  - Platelet count decreased [Recovered/Resolved]

NARRATIVE: CASE EVENT DATE: 20200604
